FAERS Safety Report 5468927-X (Version None)
Quarter: 2007Q3

REPORT INFORMATION
  Report Type: 
  Country: None (occurrence: None)
  Receive Date: 20070926
  Receipt Date: 20070917
  Transmission Date: 20080115
  Serious: Yes (Hospitalization)
  Sender: FDA-Public Use
  Company Number: US-MERCK-0706USA04018

PATIENT
  Age: 83 Year
  Sex: Female
  Weight: 85 kg

DRUGS (18)
  1. JANUVIA [Suspect]
     Indication: TYPE 2 DIABETES MELLITUS
     Route: 048
     Dates: start: 20070601, end: 20070619
  2. ASPIRIN [Concomitant]
     Route: 065
  3. ACETAMINOPHEN [Concomitant]
     Route: 065
  4. CENTURY SENIOR VITAMINS [Concomitant]
     Route: 065
  5. OS-CAL + D [Concomitant]
     Route: 065
  6. FLONASE [Concomitant]
     Route: 065
  7. LAMISIL [Concomitant]
     Route: 065
  8. CYMBALTA [Concomitant]
     Route: 065
  9. NITROGLYCERIN [Concomitant]
     Route: 060
  10. FUROSEMIDE [Concomitant]
     Route: 065
  11. POTASSIUM (UNSPECIFIED) [Concomitant]
     Route: 065
  12. LORATADINE [Concomitant]
     Route: 065
  13. METOPROLOL TARTRATE [Concomitant]
     Route: 065
  14. GLIPIZIDE [Concomitant]
     Route: 065
  15. AVANDIA [Concomitant]
     Route: 065
  16. FELODIPINE [Concomitant]
     Route: 065
  17. SIMVASTATIN [Concomitant]
     Route: 065
  18. NYSTATIN [Concomitant]
     Route: 065

REACTIONS (2)
  - CARDIAC FAILURE CONGESTIVE [None]
  - RENAL FAILURE ACUTE [None]
